FAERS Safety Report 4489565-1 (Version None)
Quarter: 2004Q4

REPORT INFORMATION
  Report Type: 
  Country: None (occurrence: None)
  Receive Date: 20041026
  Receipt Date: 20041018
  Transmission Date: 20050328
  Serious: Yes (Death)
  Sender: FDA-Public Use
  Company Number: F01200403214

PATIENT
  Age: 78 Year
  Sex: Female

DRUGS (5)
  1. OXALIPLATIN SOLUTION 200 MG [Suspect]
     Indication: COLORECTAL CANCER METASTATIC
     Dosage: 200 MG Q3W
     Route: 042
     Dates: start: 20040914, end: 20040914
  2. CAPECITABINE TABLET [Suspect]
     Route: 048
     Dates: start: 20040914, end: 20040914
  3. BEVACIZUMAB SOLUTION 450 MG [Suspect]
     Dosage: 450 MG Q3W
     Route: 042
     Dates: start: 20040914, end: 20040914
  4. DILZEM (DILTIAZEM HYDROCHLORIDE) [Concomitant]
  5. ATORVASTATIN CALCIUM [Concomitant]

REACTIONS (22)
  - ACTIVATED PARTIAL THROMBOPLASTIN TIME PROLONGED [None]
  - BLOOD CHOLINESTERASE DECREASED [None]
  - BLOOD CREATININE INCREASED [None]
  - BLOOD FIBRINOGEN INCREASED [None]
  - BLOOD GLUCOSE INCREASED [None]
  - BLOOD UREA INCREASED [None]
  - DIARRHOEA [None]
  - EMBOLISM [None]
  - FIBRIN D DIMER INCREASED [None]
  - GENERAL PHYSICAL HEALTH DETERIORATION [None]
  - HAEMATOCRIT DECREASED [None]
  - HAEMOGLOBIN DECREASED [None]
  - ILEUS PARALYTIC [None]
  - MALIGNANT NEOPLASM PROGRESSION [None]
  - MEAN CELL HAEMOGLOBIN CONCENTRATION INCREASED [None]
  - MEAN CELL HAEMOGLOBIN DECREASED [None]
  - MEAN CELL VOLUME DECREASED [None]
  - MESENTERIC VEIN THROMBOSIS [None]
  - PROTEIN TOTAL DECREASED [None]
  - PROTHROMBIN TIME SHORTENED [None]
  - RESPIRATORY FAILURE [None]
  - VERTIGO [None]
